FAERS Safety Report 6347887-3 (Version None)
Quarter: 2009Q3

REPORT INFORMATION
  Report Type: 
  Country: None (occurrence: None)
  Receive Date: 20090910
  Receipt Date: 20090902
  Transmission Date: 20100115
  Serious: Yes (Other)
  Sender: FDA-Public Use
  Company Number: US-SANOFI-SYNTHELABO-A03200903907

PATIENT
  Sex: Female

DRUGS (10)
  1. PREVACID [Concomitant]
     Indication: DRUG USE FOR UNKNOWN INDICATION
     Dosage: UNK
     Route: 065
  2. VITAMIN D [Concomitant]
     Indication: VITAMIN D DECREASED
     Dosage: UNK
     Route: 065
  3. ASPIRIN [Concomitant]
     Indication: TRANSIENT ISCHAEMIC ATTACK
     Route: 048
  4. COUMADIN [Concomitant]
     Indication: ATRIAL FIBRILLATION
     Dosage: UNK
     Route: 065
  5. ATIVAN [Concomitant]
     Indication: INSOMNIA
     Dosage: UNK
     Route: 065
  6. ATIVAN [Concomitant]
     Indication: ANXIETY
     Dosage: UNK
     Route: 065
  7. ZOCOR [Concomitant]
     Indication: DRUG USE FOR UNKNOWN INDICATION
     Dosage: UNK
     Route: 065
  8. SYNTHROID [Concomitant]
     Indication: THYROIDECTOMY
     Dosage: UNK
     Route: 065
  9. ATENOLOL [Concomitant]
     Indication: HEART RATE ABNORMAL
     Dosage: UNK
     Route: 065
  10. MULTAQ [Suspect]
     Indication: ATRIAL FIBRILLATION
     Route: 048
     Dates: start: 20090820

REACTIONS (6)
  - ABDOMINAL DISCOMFORT [None]
  - ASTHENIA [None]
  - ATRIAL FIBRILLATION [None]
  - DIARRHOEA [None]
  - FLATULENCE [None]
  - PALPITATIONS [None]
